FAERS Safety Report 5984822-1 (Version None)
Quarter: 2008Q4

REPORT INFORMATION
  Report Type: 
  Country: None (occurrence: None)
  Receive Date: 20081202
  Receipt Date: 20081202
  Transmission Date: 20090506
  Serious: Yes (Life-Threatening)
  Sender: FDA-Public Use
  Company Number: 1-16963860

PATIENT
  Sex: Male

DRUGS (7)
  1. METOPROLOL TARTRATE TABLET 50 MG [Suspect]
     Indication: HYPERTENSION
     Dosage: 8 MG, INTRAVENOUS
     Route: 042
  2. METOPROLOL TARTRATE TABLET 50 MG [Suspect]
     Indication: TACHYCARDIA
     Dosage: 8 MG, INTRAVENOUS
     Route: 042
  3. EPINEPHRINE [Suspect]
     Indication: HAEMOSTASIS
     Dosage: UNREPORTED VOLUME, TOPICAL
     Route: 061
  4. PROPOFOL [Concomitant]
  5. FENTANYL-100 [Concomitant]
  6. SEVOFLURANE [Concomitant]
  7. LIDOCAINE [Concomitant]

REACTIONS (12)
  - BLOOD PRESSURE INCREASED [None]
  - CARDIAC ARREST [None]
  - CARDIOGENIC SHOCK [None]
  - DRUG INTERACTION [None]
  - ELECTROMECHANICAL DISSOCIATION [None]
  - NERVOUS SYSTEM DISORDER [None]
  - POST PROCEDURAL COMPLICATION [None]
  - PULMONARY OEDEMA [None]
  - RESPIRATORY FAILURE [None]
  - TACHYCARDIA [None]
  - VENTRICULAR DYSFUNCTION [None]
  - VENTRICULAR HYPOKINESIA [None]
